FAERS Safety Report 14024787 (Version 1)
Quarter: 2017Q3

REPORT INFORMATION
  Report Type: Spontaneous
  Country: US (occurrence: US)
  Receive Date: 20170928
  Receipt Date: 20170928
  Transmission Date: 20171128
  Serious: No
  Sender: FDA-Public Use
  Company Number: US-SA-2017SA042898

PATIENT
  Age: 61 Year
  Sex: Female

DRUGS (7)
  1. AUBAGIO [Suspect]
     Active Substance: TERIFLUNOMIDE
     Route: 048
     Dates: start: 20150618
  2. FLEXERIL [Concomitant]
     Active Substance: CYCLOBENZAPRINE HYDROCHLORIDE
  3. IBU [Concomitant]
     Active Substance: IBUPROFEN
  4. VITAMIN D [Concomitant]
     Active Substance: CHOLECALCIFEROL
     Dosage: DOSE:50000 UNIT(S)
  5. PARACETAMOL/OXYCODONE HYDROCHLORIDE [Concomitant]
  6. NYSTOP [Concomitant]
     Active Substance: NYSTATIN
  7. HYDROCHLOROTHIAZIDE WITH TRIAMTERENE [Concomitant]
     Active Substance: HYDROCHLOROTHIAZIDE\TRIAMTERENE

REACTIONS (2)
  - Anal incontinence [Not Recovered/Not Resolved]
  - Urinary incontinence [Not Recovered/Not Resolved]
